FAERS Safety Report 6136522-5 (Version None)
Quarter: 2009Q1

REPORT INFORMATION
  Report Type: 
  Country: None (occurrence: None)
  Receive Date: 20090330
  Receipt Date: 20090320
  Transmission Date: 20090719
  Serious: Yes (Hospitalization)
  Sender: FDA-Public Use
  Company Number: FR-PFIZER INC-2009187754

PATIENT

DRUGS (5)
  1. TAHOR [Suspect]
     Dosage: 10 MG, UNK
     Route: 048
     Dates: end: 20090201
  2. LYRICA [Concomitant]
     Dosage: UNK
     Dates: start: 20081201
  3. LYSANXIA [Concomitant]
  4. NOZINAN [Concomitant]
  5. KARDEGIC [Concomitant]
     Dosage: 75 MG, UNK

REACTIONS (1)
  - LUNG DISORDER [None]
